FAERS Safety Report 9975906 (Version 2)
Quarter: 2014Q1

REPORT INFORMATION
  Report Type: Spontaneous
  Country: FR (occurrence: FR)
  Receive Date: 20140306
  Receipt Date: 20140314
  Transmission Date: 20141002
  Serious: Yes (Life-Threatening)
  Sender: FDA-Public Use
  Company Number: FR-JHP PHARMACEUTICALS, LLC-JHP201400075

PATIENT
  Age: 57 Year
  Sex: Female
  Weight: 59 kg

DRUGS (1)
  1. ADRENALIN [Suspect]
     Indication: CARDIAC ARREST
     Dosage: 1 MG, INTRAOSSEOUS
     Route: 050

REACTIONS (1)
  - Drug ineffective [Recovered/Resolved]
